FAERS Safety Report 20690591 (Version 1)
Quarter: 2022Q2

REPORT INFORMATION
  Report Type: Spontaneous
  Country: US (occurrence: US)
  Receive Date: 20220408
  Receipt Date: 20220408
  Transmission Date: 20220721
  Serious: No
  Sender: FDA-Public Use
  Company Number: US-BAYER-2022A050218

PATIENT
  Age: 54 Year
  Sex: Female

DRUGS (7)
  1. AVELOX [Suspect]
     Active Substance: MOXIFLOXACIN HYDROCHLORIDE
  2. MAYZENT [SIPONIMOD] [Concomitant]
     Indication: Multiple sclerosis
     Dosage: 2 MG
     Route: 048
  3. MYRBETRIQ [Concomitant]
     Active Substance: MIRABEGRON
  4. PROGESTERONE [Concomitant]
     Active Substance: PROGESTERONE
  5. DALFAMPRIDINE [Concomitant]
     Active Substance: DALFAMPRIDINE
  6. CRESTOR [Concomitant]
     Active Substance: ROSUVASTATIN CALCIUM
  7. VITAMINS NOS [Concomitant]
     Active Substance: VITAMINS

REACTIONS (1)
  - Drug hypersensitivity [None]
